FAERS Safety Report 11904445 (Version 2)
Quarter: 2017Q1

REPORT INFORMATION
  Report Type: Spontaneous
  Country: US (occurrence: US)
  Receive Date: 20160108
  Receipt Date: 20170118
  Transmission Date: 20170428
  Serious: Yes (Death, Hospitalization, Other)
  Sender: FDA-Public Use
  Company Number: US-ROCHE-1591064

PATIENT
  Age: 28 Year
  Sex: Female

DRUGS (5)
  1. IMMUNOGLOBULIN IV [Concomitant]
     Active Substance: HUMAN IMMUNOGLOBULIN G
     Route: 042
  2. RITUXIMAB [Suspect]
     Active Substance: RITUXIMAB
     Indication: IMMUNE THROMBOCYTOPENIC PURPURA
     Dosage: TOTAL 8 DOSES
     Route: 042
  3. IMMUNOGLOBULIN IV [Concomitant]
     Active Substance: HUMAN IMMUNOGLOBULIN G
     Route: 042
  4. RITUXIMAB [Suspect]
     Active Substance: RITUXIMAB
     Indication: EVANS SYNDROME
  5. DANAZOL. [Concomitant]
     Active Substance: DANAZOL
     Route: 065

REACTIONS (7)
  - Lymphopenia [Unknown]
  - Cellulitis [Unknown]
  - Influenza [Unknown]
  - Pneumococcal sepsis [Unknown]
  - Hypogammaglobulinaemia [Unknown]
  - Meningoencephalitis viral [Fatal]
  - Meningitis aseptic [Unknown]
